FAERS Safety Report 7802751-5 (Version None)
Quarter: 2011Q4

REPORT INFORMATION
  Report Type: 
  Country: None (occurrence: None)
  Receive Date: 20111007
  Receipt Date: 20110922
  Transmission Date: 20120403
  Serious: Yes (Other)
  Sender: FDA-Public Use
  Company Number: PHHY2011BR84576

PATIENT
  Sex: Male
  Weight: 80 kg

DRUGS (4)
  1. METFORMIN HYDROCHLORIDE [Suspect]
     Indication: DIABETES MELLITUS
     Dosage: 500 MG, UNK
  2. GLIMEPIRIDE [Suspect]
     Dosage: 4 MG, UNK
  3. CAPTOPRIL [Suspect]
     Indication: HYPERTENSION
     Dosage: 25 MG, BID
  4. PROPRANOLOL [Suspect]
     Dosage: 40 MG, UNK

REACTIONS (9)
  - GLYCOSYLATED HAEMOGLOBIN INCREASED [None]
  - LOW DENSITY LIPOPROTEIN INCREASED [None]
  - OBESITY [None]
  - HIGH DENSITY LIPOPROTEIN DECREASED [None]
  - ELECTROCARDIOGRAM REPOLARISATION ABNORMALITY [None]
  - PROTEINURIA [None]
  - HYPERTENSION [None]
  - BLOOD GLUCOSE INCREASED [None]
  - BLOOD CHOLESTEROL INCREASED [None]
